FAERS Safety Report 5294323-4 (Version None)
Quarter: 2007Q2

REPORT INFORMATION
  Report Type: 
  Country: None (occurrence: None)
  Receive Date: 20070412
  Receipt Date: 20070402
  Transmission Date: 20071010
  Serious: Yes (Other)
  Sender: FDA-Public Use
  Company Number: FR-JNJFOC-20070401143

PATIENT
  Sex: Female

DRUGS (1)
  1. EPITOMAX [Suspect]
     Indication: ALCOHOL WITHDRAWAL SYNDROME
     Route: 048

REACTIONS (3)
  - DRUG EXPOSURE DURING PREGNANCY [None]
  - OFF LABEL USE [None]
  - UTERINE HAEMORRHAGE [None]
